FAERS Safety Report 9007317 (Version 1)
Quarter: 2013Q1

REPORT INFORMATION
  Report Type: Spontaneous
  Country: IT (occurrence: IT)
  Receive Date: 20130110
  Receipt Date: 20130110
  Transmission Date: 20140127
  Serious: Yes (Other)
  Sender: FDA-Public Use
  Company Number: IT-TEVA-378923ISR

PATIENT
  Age: 72 Year
  Sex: Female

DRUGS (7)
  1. FLUOROURACIL [Suspect]
     Indication: COLON CANCER
     Dosage: 1G/20ML
     Route: 042
     Dates: start: 20121122, end: 20121122
  2. FLUOROURACIL [Suspect]
     Dosage: 250MG/5ML
     Route: 042
     Dates: start: 20121122, end: 20121123
  3. CAMPTO [Suspect]
     Indication: COLON CANCER
     Dosage: 20 MG/ML
     Route: 042
     Dates: start: 20121122, end: 20121122
  4. AVASTIN [Suspect]
     Indication: COLON CANCER
     Route: 042
     Dates: start: 20121122, end: 20121122
  5. ONDANSETRON [Concomitant]
     Indication: COLON CANCER
     Route: 042
     Dates: start: 20121122, end: 20121122
  6. RANIDIL [Concomitant]
     Indication: COLON CANCER
     Dosage: 50MG/5ML
     Route: 042
     Dates: start: 20121122, end: 20121122
  7. SOLDESAM [Concomitant]
     Indication: COLON CANCER
     Dosage: 8MG/2ML
     Route: 042
     Dates: start: 20121122, end: 20121122

REACTIONS (7)
  - Fatigue [Recovering/Resolving]
  - Visual impairment [Recovering/Resolving]
  - Lacrimation increased [Recovering/Resolving]
  - Gait disturbance [Recovering/Resolving]
  - Nausea [Recovering/Resolving]
  - Vomiting [Recovering/Resolving]
  - Stomatitis [Recovering/Resolving]
